FAERS Safety Report 7561259-5 (Version None)
Quarter: 2011Q2

REPORT INFORMATION
  Report Type: 
  Country: None (occurrence: None)
  Receive Date: 20110621
  Receipt Date: 20100701
  Transmission Date: 20111010
  Serious: No
  Sender: FDA-Public Use
  Company Number: US-ASTRAZENECA-2010SE30859

PATIENT
  Age: 41 Year
  Sex: Female
  Weight: 65.3 kg

DRUGS (3)
  1. PULMICORT FLEXHALER [Suspect]
     Dosage: BID
     Route: 055
  2. PULMICORT FLEXHALER [Suspect]
     Dosage: 90 MCG BID
     Route: 055
     Dates: start: 20090601
  3. VITAMIN TAB [Concomitant]

REACTIONS (2)
  - MALAISE [None]
  - DRUG EXPOSURE DURING PREGNANCY [None]
